FAERS Safety Report 24700473 (Version 3)
Quarter: 2025Q2

REPORT INFORMATION
  Report Type: Spontaneous
  Country: AU (occurrence: AU)
  Receive Date: 20241205
  Receipt Date: 20250401
  Transmission Date: 20250716
  Serious: Yes (Other)
  Sender: JOHNSON AND JOHNSON
  Company Number: AU-JNJFOC-20240846144

PATIENT
  Age: 15 Year
  Sex: Female
  Weight: 48 kg

DRUGS (2)
  1. VELETRI [Suspect]
     Active Substance: EPOPROSTENOL
     Indication: Pulmonary arterial hypertension
     Route: 042
     Dates: start: 20190401
  2. OXYGEN [Suspect]
     Active Substance: OXYGEN

REACTIONS (11)
  - Infusion site discharge [Recovered/Resolved]
  - Syncope [Unknown]
  - Complication associated with device [Unknown]
  - Product administration interrupted [Unknown]
  - Fatigue [Unknown]
  - Lethargy [Unknown]
  - Abdominal pain [Unknown]
  - Peripheral coldness [Unknown]
  - Pallor [Unknown]
  - Malaise [Unknown]
  - Abdominal discomfort [Unknown]

NARRATIVE: CASE EVENT DATE: 20240813
